FAERS Safety Report 7240321-0 (Version None)
Quarter: 2011Q1

REPORT INFORMATION
  Report Type: 
  Country: None (occurrence: None)
  Receive Date: 20110124
  Receipt Date: 20110112
  Transmission Date: 20110831
  Serious: Yes (Hospitalization)
  Sender: FDA-Public Use
  Company Number: US-SANOFI-AVENTIS-2011SA003086

PATIENT
  Age: 76 Year
  Sex: Female

DRUGS (6)
  1. LOVENOX [Suspect]
     Indication: DEEP VEIN THROMBOSIS
     Route: 065
     Dates: start: 20101230, end: 20110112
  2. ASPIRIN [Concomitant]
  3. NEBIVOLOL [Concomitant]
  4. COUMADIN [Concomitant]
  5. ARICEPT [Concomitant]
  6. NAMENDA [Concomitant]

REACTIONS (4)
  - OEDEMA PERIPHERAL [None]
  - PRODUCT QUALITY ISSUE [None]
  - SKIN ULCER [None]
  - SKIN DISCOLOURATION [None]
